FAERS Safety Report 9271600 (Version 1)
Quarter: 2013Q2

REPORT INFORMATION
  Report Type: Spontaneous
  Country: US (occurrence: US)
  Receive Date: 20130506
  Receipt Date: 20130506
  Transmission Date: 20140414
  Serious: Yes (Other)
  Sender: FDA-Public Use
  Company Number: US-PFIZER INC-2013139034

PATIENT
  Age: 58 Year
  Sex: Female
  Weight: 81.63 kg

DRUGS (3)
  1. CHANTIX [Suspect]
     Indication: SMOKING CESSATION THERAPY
     Dosage: 0.5 MG, 1X/DAY
     Route: 048
  2. CHANTIX [Suspect]
     Dosage: UNK
     Route: 048
     Dates: start: 201303, end: 201304
  3. CHANTIX [Suspect]
     Dosage: UNK
     Route: 048
     Dates: start: 201304

REACTIONS (7)
  - Bronchitis [Unknown]
  - Laryngitis [Unknown]
  - Throat irritation [Unknown]
  - Dyspnoea [Unknown]
  - Speech disorder [Unknown]
  - Abdominal discomfort [Unknown]
  - Drug dose omission [Unknown]
